FAERS Safety Report 14649401 (Version 4)
Quarter: 2020Q4

REPORT INFORMATION
  Report Type: Spontaneous
  Country: FR (occurrence: FR)
  Receive Date: 20180316
  Receipt Date: 20201001
  Transmission Date: 20210113
  Serious: Yes (Other)
  Sender: FDA-Public Use
  Company Number: FR-JNJFOC-20141203612

PATIENT

DRUGS (13)
  1. STELARA [Suspect]
     Active Substance: USTEKINUMAB
     Indication: ANORECTAL DISORDER
     Route: 058
  2. STELARA [Suspect]
     Active Substance: USTEKINUMAB
     Dosage: WEEK 0 / 90
     Route: 042
  3. METHOTREXATE. [Concomitant]
     Active Substance: METHOTREXATE
  4. STELARA [Suspect]
     Active Substance: USTEKINUMAB
     Indication: CROHN^S DISEASE
     Route: 058
     Dates: start: 201103
  5. STELARA [Suspect]
     Active Substance: USTEKINUMAB
     Dosage: WEEK 0,1,2,4
     Route: 058
  6. INFLIXIMAB, RECOMBINANT [Suspect]
     Active Substance: INFLIXIMAB
     Indication: CROHN^S DISEASE
     Route: 042
  7. 5-AMINOSALICYLIC ACID [Concomitant]
     Active Substance: MESALAMINE
  8. STELARA [Suspect]
     Active Substance: USTEKINUMAB
     Dosage: WEEK 6
     Route: 058
  9. STELARA [Suspect]
     Active Substance: USTEKINUMAB
     Dosage: WEEK 0
     Route: 042
  10. STELARA [Suspect]
     Active Substance: USTEKINUMAB
     Dosage: WEEK 0,2,4
     Route: 058
  11. STELARA [Suspect]
     Active Substance: USTEKINUMAB
     Dosage: WEEK 4
     Route: 042
  12. STELARA [Suspect]
     Active Substance: USTEKINUMAB
     Route: 058
  13. ADALIMUMAB [Suspect]
     Active Substance: ADALIMUMAB
     Indication: CROHN^S DISEASE
     Route: 065

REACTIONS (12)
  - Acne [Unknown]
  - Eczema [Unknown]
  - Myalgia [Unknown]
  - Off label use [Unknown]
  - Oral infection [Unknown]
  - Pneumonia [Unknown]
  - Respiratory tract infection [Unknown]
  - Hidradenitis [Unknown]
  - Therapeutic response decreased [Unknown]
  - Paradoxical psoriasis [Recovering/Resolving]
  - Skin infection [Unknown]
  - Product use in unapproved indication [Unknown]
